FAERS Safety Report 19658117 (Version 1)
Quarter: 2021Q3

REPORT INFORMATION
  Report Type: Spontaneous
  Country: NL (occurrence: NL)
  Receive Date: 20210805
  Receipt Date: 20210805
  Transmission Date: 20211014
  Serious: Yes (Hospitalization, Other)
  Sender: FDA-Public Use
  Company Number: NL-AUROBINDO-AUR-APL-2021-032388

PATIENT
  Age: 43 Year
  Sex: Male

DRUGS (2)
  1. VENLAFAXINE [Concomitant]
     Active Substance: VENLAFAXINE HYDROCHLORIDE
     Indication: DEPERSONALISATION/DEREALISATION DISORDER
     Dosage: UNK
     Route: 065
  2. LAMOTRIGINE. [Suspect]
     Active Substance: LAMOTRIGINE
     Indication: DEPERSONALISATION/DEREALISATION DISORDER
     Dosage: 50 MILLIGRAM, ONCE A DAY
     Route: 065

REACTIONS (2)
  - Megakaryocytes increased [Recovered/Resolved]
  - Haemophagocytic lymphohistiocytosis [Recovered/Resolved]
